FAERS Safety Report 11815571 (Version 1)
Quarter: 2015Q4

REPORT INFORMATION
  Report Type: Spontaneous
  Country: FR (occurrence: FR)
  Receive Date: 20151209
  Receipt Date: 20151209
  Transmission Date: 20160305
  Serious: Yes (Hospitalization, Other)
  Sender: FDA-Public Use
  Company Number: FR-BAXTER-2015BAX064656

PATIENT
  Age: 47 Year
  Sex: Female

DRUGS (8)
  1. AVASTIN [Suspect]
     Active Substance: BEVACIZUMAB
     Indication: BREAST CANCER
     Dosage: 12 COURSES
     Route: 065
     Dates: start: 20150721
  2. AMLODIPINE [Concomitant]
     Active Substance: AMLODIPINE BESYLATE
     Indication: PRODUCT USED FOR UNKNOWN INDICATION
     Route: 065
  3. ENDOXAN 1000 MG, POUDRE POUR SOLUTION INJECTABLE [Suspect]
     Active Substance: CYCLOPHOSPHAMIDE
     Dosage: FIFTH COURSE
     Route: 065
     Dates: start: 20151022
  4. MYOCET [Suspect]
     Active Substance: DOXORUBICIN
     Indication: BREAST CANCER
     Route: 065
     Dates: start: 20150721
  5. MYOCET [Suspect]
     Active Substance: DOXORUBICIN
     Dosage: FIFTH COURSE
     Route: 065
     Dates: start: 20151022
  6. TAXOL [Suspect]
     Active Substance: PACLITAXEL
     Indication: BREAST CANCER
     Dosage: 12 COURSES
     Route: 065
     Dates: start: 20150721
  7. ENDOXAN 1000 MG, POUDRE POUR SOLUTION INJECTABLE [Suspect]
     Active Substance: CYCLOPHOSPHAMIDE
     Indication: BREAST CANCER
     Route: 065
     Dates: start: 20150721
  8. BARACLUDE [Concomitant]
     Active Substance: ENTECAVIR
     Indication: HEPATITIS B
     Route: 065

REACTIONS (8)
  - Pulmonary arterial hypertension [Unknown]
  - Thrombocytopenia [Unknown]
  - Cardiomegaly [Unknown]
  - Cardiac failure [Not Recovered/Not Resolved]
  - Neutropenia [Unknown]
  - Pleural effusion [Unknown]
  - Pericardial effusion [Unknown]
  - Anaemia [Unknown]

NARRATIVE: CASE EVENT DATE: 20151106
